FAERS Safety Report 8827604 (Version 3)
Quarter: 2016Q2

REPORT INFORMATION
  Report Type: Report from Study
  Country: US (occurrence: US)
  Receive Date: 20121005
  Receipt Date: 20160421
  Transmission Date: 20160815
  Serious: Yes (Death)
  Sender: FDA-Public Use
  Company Number: US-ROCHE-1129938

PATIENT
  Sex: Female

DRUGS (2)
  1. RITUXAN [Suspect]
     Active Substance: RITUXIMAB
     Indication: LYMPHOMA
     Route: 042
     Dates: end: 20140819
  2. RITUXAN [Suspect]
     Active Substance: RITUXIMAB
     Indication: OFF LABEL USE

REACTIONS (1)
  - Death [Fatal]
